FAERS Safety Report 21485586 (Version 5)
Quarter: 2022Q4

REPORT INFORMATION
  Report Type: Report from Study
  Country: DE (occurrence: DE)
  Receive Date: 20221020
  Receipt Date: 20221226
  Transmission Date: 20230112
  Serious: Yes (Hospitalization)
  Sender: FDA-Public Use
  Company Number: DE-ADVANZ PHARMA-202210006726

PATIENT
  Sex: Male

DRUGS (1)
  1. OBETICHOLIC ACID [Suspect]
     Active Substance: OBETICHOLIC ACID
     Indication: Primary biliary cholangitis
     Dosage: 5 MILLIGRAM, QD
     Route: 048
     Dates: start: 20180125

REACTIONS (3)
  - Post procedural haematoma [Recovered/Resolved]
  - Haematoma [Recovered/Resolved]
  - Peripheral venous disease [Recovered/Resolved with Sequelae]

NARRATIVE: CASE EVENT DATE: 20220524
